FAERS Safety Report 22399449 (Version 1)
Quarter: 2023Q2

REPORT INFORMATION
  Report Type: Report from Study
  Country: MZ (occurrence: MZ)
  Receive Date: 20230602
  Receipt Date: 20230602
  Transmission Date: 20230721
  Serious: Yes (Death, Other)
  Sender: FDA-Public Use
  Company Number: MZ-CIPLA LTD.-2023MZ02950

PATIENT

DRUGS (3)
  1. ALBENDAZOLE [Suspect]
     Active Substance: ALBENDAZOLE
     Indication: Vector-borne transmission of infection
     Dosage: 400 MILLIGRAM, MONTHLY (FIRST MONTH)
     Route: 048
     Dates: start: 20220428, end: 20220428
  2. ALBENDAZOLE [Suspect]
     Active Substance: ALBENDAZOLE
     Dosage: 400 MILLIGRAM, MONTHLY (SECOND MONTH)
     Route: 048
     Dates: start: 20220531, end: 20220531
  3. ALBENDAZOLE [Suspect]
     Active Substance: ALBENDAZOLE
     Dosage: 400 MILLIGRAM, MONTHLY (THIRD MONTH)
     Route: 048
     Dates: start: 20220701, end: 20220701

REACTIONS (1)
  - Death [Fatal]
